FAERS Safety Report 15090563 (Version 1)
Quarter: 2018Q2

REPORT INFORMATION
  Report Type: Spontaneous
  Country: US (occurrence: US)
  Receive Date: 20180629
  Receipt Date: 20180629
  Transmission Date: 20180711
  Serious: No
  Sender: FDA-Public Use
  Company Number: US-PFIZER INC-2018232985

PATIENT
  Age: 75 Year
  Sex: Female

DRUGS (7)
  1. IBRANCE [Suspect]
     Active Substance: PALBOCICLIB
     Dosage: UNK, CYCLIC (21 DAY CYCLE)
  2. OMEPRAZOLE. [Concomitant]
     Active Substance: OMEPRAZOLE
     Dosage: UNK
  3. VITAMIN B [Concomitant]
     Active Substance: VITAMIN B
     Indication: MACULAR DEGENERATION
     Dosage: UNK
  4. PROBIOTIC [Concomitant]
     Active Substance: PROBIOTICS NOS
     Indication: MACULAR DEGENERATION
     Dosage: UNK
  5. CALCIUM [Concomitant]
     Active Substance: CALCIUM
     Indication: MACULAR DEGENERATION
     Dosage: UNK
  6. MAGNESIUM [Concomitant]
     Active Substance: MAGNESIUM
     Indication: MACULAR DEGENERATION
     Dosage: UNK
  7. COD LIVER OIL [Concomitant]
     Active Substance: COD LIVER OIL
     Indication: MACULAR DEGENERATION
     Dosage: UNK

REACTIONS (1)
  - White blood cell count decreased [Unknown]
